FAERS Safety Report 4976723-2 (Version None)
Quarter: 2006Q2

REPORT INFORMATION
  Report Type: 
  Country: None (occurrence: None)
  Receive Date: 20060419
  Receipt Date: 20060410
  Transmission Date: 20061013
  Serious: Yes (Hospitalization)
  Sender: FDA-Public Use
  Company Number: PHBS2006DK05382

PATIENT
  Age: 30 Year
  Sex: Male

DRUGS (2)
  1. RITALIN [Suspect]
     Indication: ATTENTION DEFICIT/HYPERACTIVITY DISORDER
     Dosage: 30 MG/D
     Route: 048
     Dates: start: 20051001, end: 20060406
  2. ALCOHOL [Suspect]
     Route: 048

REACTIONS (4)
  - ALCOHOL POISONING [None]
  - DISCOMFORT [None]
  - TREATMENT NONCOMPLIANCE [None]
  - TREMOR [None]
